FAERS Safety Report 10768850 (Version 3)
Quarter: 2015Q2

REPORT INFORMATION
  Report Type: Spontaneous
  Country: JP (occurrence: None)
  Receive Date: 20150204
  Receipt Date: 20150417
  Transmission Date: 20150821
  Serious: Yes (Hospitalization)
  Sender: FDA-Public Use
  Company Number: 2015-000164

PATIENT
  Age: 78 Year
  Sex: Female

DRUGS (12)
  1. SHAKUYAKUKANZOTO (HERBAL EXTRACT NOS) [Concomitant]
  2. ACTONEL [Suspect]
     Active Substance: RISEDRONATE SODIUM
     Indication: OSTEOPOROSIS
     Route: 048
     Dates: start: 20140304, end: 20140909
  3. UNIPHYL (THEOPHYLLINE) [Concomitant]
  4. LOXOPROFEN SODIUM [Concomitant]
     Active Substance: LOXOPROFEN SODIUM
  5. CARBOCAIN (MEPIVACAINE HYDROCHLORIDE) [Concomitant]
  6. HYALOS (HYALURONATE SODIUM) [Concomitant]
  7. NEUROVITAN /00280501/ (CYANOCOBALAMIN, OCTOTIAMINE, PYRIDOXINE HYDROCHLORIDE, RIBOFLAVIN) [Concomitant]
  8. FAMOTIDINE. [Concomitant]
     Active Substance: FAMOTIDINE
  9. PREDNISOLONE. [Concomitant]
     Active Substance: PREDNISOLONE
  10. BAYASPIRIN (ACETYLSALICYLIC ACID) (ACETYLSALICYLIC ACID) [Concomitant]
     Active Substance: ASPIRIN
  11. VESICARE [Concomitant]
     Active Substance: SOLIFENACIN SUCCINATE
  12. LYRICA [Concomitant]
     Active Substance: PREGABALIN

REACTIONS (1)
  - Enteritis infectious [None]

NARRATIVE: CASE EVENT DATE: 20140710
